FAERS Safety Report 10919603 (Version 2)
Quarter: 2015Q2

REPORT INFORMATION
  Report Type: Spontaneous
  Country: US (occurrence: US)
  Receive Date: 20150317
  Receipt Date: 20150526
  Transmission Date: 20150821
  Serious: No
  Sender: FDA-Public Use
  Company Number: US-JNJFOC-20130808796

PATIENT
  Age: 54 Year
  Sex: Male

DRUGS (4)
  1. EMTRICITABINE W/TENOFOVIR DISOPROXIL FUMARATE [Suspect]
     Active Substance: EMTRICITABINE\TENOFOVIR DISOPROXIL
     Indication: HIV INFECTION
     Route: 065
  2. PLACEBO [Suspect]
     Active Substance: UNSPECIFIED INGREDIENT
     Indication: HIV INFECTION
     Route: 065
  3. DARUNAVIR [Suspect]
     Active Substance: DARUNAVIR
     Indication: HIV INFECTION
     Route: 048
     Dates: start: 20130724, end: 20130730
  4. COBICISTAT [Suspect]
     Active Substance: COBICISTAT
     Indication: HIV INFECTION
     Route: 065

REACTIONS (1)
  - Medication error [Recovered/Resolved]

NARRATIVE: CASE EVENT DATE: 20130724
